FAERS Safety Report 8436329-X (Version None)
Quarter: 2012Q2

REPORT INFORMATION
  Report Type: 
  Country: None (occurrence: None)
  Receive Date: 20120614
  Receipt Date: 20120601
  Transmission Date: 20120825
  Serious: Yes (Other)
  Sender: FDA-Public Use
  Company Number: NZ-ELI_LILLY_AND_COMPANY-NZ201206001029

PATIENT
  Age: 25 Year
  Sex: Male

DRUGS (1)
  1. ZYPREXA RELPREVV [Suspect]
     Dosage: 300 MG, 2/M

REACTIONS (5)
  - VISION BLURRED [None]
  - DYSARTHRIA [None]
  - INFLUENZA [None]
  - GAIT DISTURBANCE [None]
  - WEIGHT INCREASED [None]
